FAERS Safety Report 7208043-X (Version None)
Quarter: 2011Q1

REPORT INFORMATION
  Report Type: 
  Country: None (occurrence: None)
  Receive Date: 20110104
  Receipt Date: 20101230
  Transmission Date: 20110831
  Serious: No
  Sender: FDA-Public Use
  Company Number: US-PFIZER INC-2010182320

PATIENT
  Sex: Female
  Weight: 57.143 kg

DRUGS (1)
  1. AZITHROMYCIN [Suspect]
     Indication: SINUSITIS
     Dosage: UNK
     Route: 048
     Dates: start: 20100704, end: 20100708

REACTIONS (2)
  - DIARRHOEA [None]
  - ELECTROLYTE IMBALANCE [None]
